FAERS Safety Report 13253084 (Version 4)
Quarter: 2017Q1

REPORT INFORMATION
  Report Type: Spontaneous
  Country: CH (occurrence: CH)
  Receive Date: 20170220
  Receipt Date: 20170310
  Transmission Date: 20170428
  Serious: Yes (Hospitalization, Other)
  Sender: FDA-Public Use
  Company Number: CH-ABBVIE-17P-151-1879236-00

PATIENT
  Age: 56 Year
  Sex: Female

DRUGS (4)
  1. HUMIRA [Suspect]
     Active Substance: ADALIMUMAB
     Indication: CROHN^S DISEASE
     Route: 058
     Dates: start: 20071019, end: 20151103
  2. FOSAMAX [Concomitant]
     Active Substance: ALENDRONATE SODIUM
     Indication: PRODUCT USED FOR UNKNOWN INDICATION
     Dosage: CO-MED AT THE TIME OF THE AE
  3. HUMIRA [Suspect]
     Active Substance: ADALIMUMAB
     Route: 058
  4. VITARUBIN [Concomitant]
     Active Substance: CYANOCOBALAMIN
     Indication: PRODUCT USED FOR UNKNOWN INDICATION
     Dosage: CO-MED AT THE TIME OF THE AE

REACTIONS (10)
  - Intestinal ischaemia [Recovering/Resolving]
  - Septic shock [Recovering/Resolving]
  - Postoperative abscess [Unknown]
  - Large intestine perforation [Unknown]
  - Peritonitis [Recovering/Resolving]
  - Short-bowel syndrome [Unknown]
  - Acute abdomen [Recovering/Resolving]
  - Gastrointestinal toxicity [Recovering/Resolving]
  - Gastrointestinal necrosis [Unknown]
  - Post procedural fistula [Unknown]

NARRATIVE: CASE EVENT DATE: 201511
